FAERS Safety Report 5107775-7 (Version None)
Quarter: 2006Q3

REPORT INFORMATION
  Report Type: 
  Country: None (occurrence: None)
  Receive Date: 20060914
  Receipt Date: 20060911
  Transmission Date: 20061208
  Serious: Yes (Hospitalization, Other)
  Sender: FDA-Public Use
  Company Number: EM2006-0209

PATIENT
  Age: 60 Year
  Sex: Male
  Weight: 81 kg

DRUGS (2)
  1. PROLEUKIN [Suspect]
     Indication: METASTATIC RENAL CELL CARCINOMA
     Dosage: 117 UNITS, SUBCUTAN.
     Route: 058
     Dates: start: 20060301, end: 20060306
  2. INTERFERON ALFA(INTERFERON ALFA) [Suspect]
     Indication: METASTATIC RENAL CELL CARCINOMA
     Dosage: 12 MU, ONCE, SUNCUTAN.
     Route: 058
     Dates: start: 20060227, end: 20060227

REACTIONS (4)
  - MALIGNANT NEOPLASM PROGRESSION [None]
  - RENAL CANCER METASTATIC [None]
  - SPINAL COMPRESSION FRACTURE [None]
  - SPINAL CORD COMPRESSION [None]
